FAERS Safety Report 5056717-1 (Version None)
Quarter: 2006Q2

REPORT INFORMATION
  Report Type: 
  Country: None (occurrence: None)
  Receive Date: 20060616
  Receipt Date: 20060324
  Transmission Date: 20061013
  Serious: No
  Sender: FDA-Public Use
  Company Number: 2006US000652

PATIENT
  Age: 47 Year
  Sex: Female

DRUGS (12)
  1. VESICARE [Suspect]
     Indication: HYPERTONIC BLADDER
     Dosage: 5 MG, BID, ORAL
     Route: 048
     Dates: start: 20060313
  2. LIPITOR [Concomitant]
  3. FLEXERIL [Concomitant]
  4. KLONOPIN [Concomitant]
  5. ZOLOFT [Concomitant]
  6. SEASONALE (ETHINYLESTRADIOL, LEVONORGESTREL) [Concomitant]
  7. CLARINEX /DEN/ (PSEUDOEPHEDRINE SULFATE, LORATADINE) [Concomitant]
  8. GENOTROPIN [Concomitant]
  9. ASPIRIN [Concomitant]
  10. MULTIVITAMIN [Concomitant]
  11. SYNTHROID [Concomitant]
  12. CYTOMEL [Concomitant]

REACTIONS (1)
  - VISION BLURRED [None]
